FAERS Safety Report 21656361 (Version 1)
Quarter: 2022Q4

REPORT INFORMATION
  Report Type: Spontaneous
  Country: FR (occurrence: FR)
  Receive Date: 20221129
  Receipt Date: 20221129
  Transmission Date: 20230113
  Serious: Yes (Hospitalization, Other)
  Sender: FDA-Public Use
  Company Number: FR-AFSSAPS-CN20222034

PATIENT
  Age: 29 Year
  Sex: Female

DRUGS (2)
  1. ALPRAZOLAM [Suspect]
     Active Substance: ALPRAZOLAM
     Indication: Toxicity to various agents
     Dosage: 17.5 MILLIGRAM, 1 TOTAL (SELON LA PATIENTE, AURAIT PRIS 70 COMPRIM?S DE 0.25MG)
     Route: 048
     Dates: start: 20221103
  2. TERALITHE [Suspect]
     Active Substance: LITHIUM CARBONATE
     Indication: Toxicity to various agents
     Dosage: 24000 MILLIGRAM, 1 TOTAL (SELON LA PATIENTE A PRIS 60 COMPRIM?S DE 400MG)
     Route: 048
     Dates: start: 20221103

REACTIONS (2)
  - Altered state of consciousness [Recovered/Resolved]
  - Toxicity to various agents [Recovered/Resolved]

NARRATIVE: CASE EVENT DATE: 20221103
